FAERS Safety Report 5010169-6 (Version None)
Quarter: 2006Q2

REPORT INFORMATION
  Report Type: 
  Country: None (occurrence: None)
  Receive Date: 20060404
  Receipt Date: 20051123
  Transmission Date: 20061013
  Serious: No
  Sender: FDA-Public Use
  Company Number: US200511002480

PATIENT
  Age: 53 Year
  Sex: Female

DRUGS (5)
  1. CYMBALTA [Suspect]
     Indication: PAIN
     Dosage: 40 MG, 2/D
     Dates: start: 20050101
  2. NEURONTIN [Concomitant]
  3. PRILOSEC [Concomitant]
  4. SEROQUEL [Concomitant]
  5. WELLBUTRIN [Concomitant]

REACTIONS (2)
  - DRUG SCREEN POSITIVE [None]
  - FEELING JITTERY [None]
